FAERS Safety Report 6916951-X (Version None)
Quarter: 2010Q3

REPORT INFORMATION
  Report Type: 
  Country: None (occurrence: None)
  Receive Date: 20100810
  Receipt Date: 20100730
  Transmission Date: 20110219
  Serious: Yes (Hospitalization)
  Sender: FDA-Public Use
  Company Number: A0789887A

PATIENT
  Age: 45 Year
  Sex: Female

DRUGS (6)
  1. AVANDIA [Suspect]
     Dosage: 4MG TWICE PER DAY
     Route: 048
     Dates: start: 20030301, end: 20070501
  2. AMARYL [Concomitant]
  3. METFORMIN HCL [Concomitant]
  4. ASPIRIN [Concomitant]
  5. DIOVAN [Concomitant]
  6. BISOPROLOL [Concomitant]

REACTIONS (2)
  - MYOCARDIAL INFARCTION [None]
  - MYOCARDIAL ISCHAEMIA [None]
